FAERS Safety Report 10173928 (Version 1)
Quarter: 2014Q2

REPORT INFORMATION
  Report Type: Spontaneous
  Country: US (occurrence: None)
  Receive Date: 20140513
  Receipt Date: 20140513
  Transmission Date: 20141212
  Serious: Yes (Life-Threatening, Other)
  Sender: FDA-Public Use
  Company Number: 20140251

PATIENT
  Age: 19 Year
  Sex: Male

DRUGS (6)
  1. CYCLOSPORINE [Suspect]
     Indication: IMMUNOSUPPRESSANT DRUG THERAPY
     Route: 042
  2. TACROLIMUS [Suspect]
     Indication: IMMUNOSUPPRESSANT DRUG THERAPY
  3. PREDNISONE [Suspect]
     Indication: IMMUNOSUPPRESSANT DRUG THERAPY
  4. DACLIZUMAB [Suspect]
     Indication: IMMUNOSUPPRESSANT DRUG THERAPY
  5. MYCOPHENOLATE MOFETIL [Suspect]
     Indication: IMMUNOSUPPRESSANT DRUG THERAPY
  6. SILDENAFIL [Concomitant]

REACTIONS (14)
  - Muscular weakness [None]
  - Haemodialysis [None]
  - Renal impairment [None]
  - Generalised tonic-clonic seizure [None]
  - Acute respiratory failure [None]
  - Hypercapnia [None]
  - Hypoxia [None]
  - Asthenia [None]
  - Areflexia [None]
  - Sensory loss [None]
  - Myopathy [None]
  - Glycogen storage disease type II [None]
  - Critical illness myopathy [None]
  - Stress [None]
